FAERS Safety Report 9298891 (Version 1)
Quarter: 2013Q2

REPORT INFORMATION
  Report Type: Spontaneous
  Country: US (occurrence: US)
  Receive Date: 20130520
  Receipt Date: 20130520
  Transmission Date: 20140414
  Serious: No
  Sender: FDA-Public Use
  Company Number: US-SANOFI-AVENTIS-2012SA047824

PATIENT
  Age: 69 Year
  Sex: Female

DRUGS (4)
  1. APIDRA SOLOSTAR [Suspect]
     Indication: TYPE 2 DIABETES MELLITUS
     Dosage: SLIDING SCALE DOSAGE
     Route: 058
  2. SOLOSTAR [Suspect]
     Indication: DEVICE THERAPY
  3. LANTUS SOLOSTAR [Suspect]
     Indication: TYPE 2 DIABETES MELLITUS
     Dosage: STARTED 1.5 TO 2 YEARS AGO
     Route: 058
  4. SOLOSTAR [Suspect]
     Indication: DEVICE THERAPY

REACTIONS (4)
  - Tremor [Unknown]
  - Local swelling [Unknown]
  - Weight increased [Unknown]
  - Blood glucose abnormal [Unknown]
